FAERS Safety Report 7331961-9 (Version None)
Quarter: 2011Q1

REPORT INFORMATION
  Report Type: 
  Country: None (occurrence: None)
  Receive Date: 20110304
  Receipt Date: 20110225
  Transmission Date: 20110831
  Serious: Yes (Other)
  Sender: FDA-Public Use
  Company Number: GB-B.I. PHARMACEUTICALS,INC./RIDGEFIELD-2011-BP-05835YA

PATIENT
  Sex: Male
  Weight: 112 kg

DRUGS (15)
  1. ALLOPURINOL [Concomitant]
     Route: 048
  2. TIOTROPIUM BROMIDE (TIOTROPIUM BROMIDE) [Concomitant]
     Route: 055
  3. FERROUS FUMARATE [Concomitant]
     Route: 048
  4. LORATADINE [Concomitant]
     Route: 048
  5. ISPAGHULA HUSK(PLANTAGO OVATA HUSK) [Concomitant]
     Route: 048
  6. FLOMAX [Suspect]
     Indication: BENIGN PROSTATIC HYPERPLASIA
     Dosage: 400 MCG
     Route: 048
     Dates: start: 20100915, end: 20110124
  7. BECLOMETHASONE DIPROPIONATE [Concomitant]
     Route: 055
  8. LACTULOSE [Concomitant]
     Route: 048
  9. FUROSEMIDE [Concomitant]
     Route: 048
  10. LANSOPRAZOLE [Concomitant]
     Route: 048
  11. MOVICOL (MACROGOL 3350) [Concomitant]
     Route: 048
  12. SALBUTAMOL (SALBUTAMOL) [Concomitant]
     Route: 055
  13. ATENOLOL [Concomitant]
     Route: 048
  14. BECLOMETHASONE DIPROPIONATE [Concomitant]
     Route: 045
  15. PRAVASTATIN [Concomitant]
     Route: 048

REACTIONS (4)
  - DYSPNOEA [None]
  - MIGRAINE [None]
  - VERTIGO [None]
  - PRURITUS [None]
